FAERS Safety Report 24028363 (Version 1)
Quarter: 2024Q2

REPORT INFORMATION
  Report Type: Spontaneous
  Country: CN (occurrence: CN)
  Receive Date: 20240628
  Receipt Date: 20240628
  Transmission Date: 20240715
  Serious: Yes (Hospitalization)
  Sender: FDA-Public Use
  Company Number: CN-BAYER-2024A090352

PATIENT
  Age: 63 Year
  Sex: Male
  Weight: 89 kg

DRUGS (1)
  1. KERENDIA [Suspect]
     Active Substance: FINERENONE
     Indication: Nephroprotective therapy
     Dosage: 20 MG, QD
     Route: 048
     Dates: end: 20240617

REACTIONS (2)
  - Hyperkalaemia [Recovering/Resolving]
  - Gout [None]

NARRATIVE: CASE EVENT DATE: 20240611
